FAERS Safety Report 8494091-9 (Version None)
Quarter: 2012Q3

REPORT INFORMATION
  Report Type: 
  Country: None (occurrence: None)
  Receive Date: 20120702
  Receipt Date: 20120702
  Transmission Date: 20120928
  Serious: Yes (Other)
  Sender: FDA-Public Use
  Company Number: None

PATIENT
  Age: 21 Year
  Sex: Female
  Weight: 58.0604 kg

DRUGS (5)
  1. GEODON (UNKNOWN) [Suspect]
     Indication: BIPOLAR DISORDER
     Dosage: 2X DAY
     Dates: start: 20020101
  2. CYMBALTA [Concomitant]
  3. ZYPREXA [Suspect]
     Indication: DEPRESSION
     Dosage: X2 DAY
     Dates: start: 20040101
  4. IVEGA [Concomitant]
  5. RISPERDAL [Concomitant]

REACTIONS (9)
  - FEELING ABNORMAL [None]
  - THINKING ABNORMAL [None]
  - LETHARGY [None]
  - PAIN [None]
  - MUSCLE TIGHTNESS [None]
  - OVERDOSE [None]
  - SEDATION [None]
  - MOVEMENT DISORDER [None]
  - DYSARTHRIA [None]
